FAERS Safety Report 8997005 (Version 1)
Quarter: 2013Q1

REPORT INFORMATION
  Report Type: Spontaneous
  Country: US (occurrence: None)
  Receive Date: 20130102
  Receipt Date: 20130102
  Transmission Date: 20140127
  Serious: Yes (Other)
  Sender: FDA-Public Use
  Company Number: None

PATIENT
  Age: 76 Year
  Sex: Male

DRUGS (1)
  1. STIVARGA [Suspect]
     Dosage: 160 MG QD PO
     Route: 048
     Dates: start: 20121205, end: 20121214

REACTIONS (3)
  - No therapeutic response [None]
  - Diarrhoea [None]
  - Nausea [None]
